FAERS Safety Report 20346089 (Version 3)
Quarter: 2022Q2

REPORT INFORMATION
  Report Type: Spontaneous
  Country: JP (occurrence: JP)
  Receive Date: 20220118
  Receipt Date: 20220506
  Transmission Date: 20220721
  Serious: Yes (Hospitalization)
  Sender: FDA-Public Use
  Company Number: JP-ELI_LILLY_AND_COMPANY-JP202201004970

PATIENT
  Age: 60 Year
  Sex: Female

DRUGS (3)
  1. OLUMIANT [Suspect]
     Active Substance: BARICITINIB
     Indication: Dermatitis atopic
     Dosage: 4 MG, DAILY
     Route: 048
     Dates: start: 20211021, end: 20211128
  2. OLUMIANT [Suspect]
     Active Substance: BARICITINIB
     Dosage: 2 MG
     Route: 048
     Dates: start: 20211129, end: 20211205
  3. OLUMIANT [Suspect]
     Active Substance: BARICITINIB
     Dosage: 4 MG
     Route: 048
     Dates: start: 20211206, end: 20220106

REACTIONS (1)
  - Peripheral T-cell lymphoma unspecified stage I [Not Recovered/Not Resolved]

NARRATIVE: CASE EVENT DATE: 20211214
